FAERS Safety Report 4709448-9 (Version None)
Quarter: 2005Q3

REPORT INFORMATION
  Report Type: 
  Country: None (occurrence: None)
  Receive Date: 20050708
  Receipt Date: 20050706
  Transmission Date: 20060218
  Serious: Yes (Life-Threatening, Other)
  Sender: FDA-Public Use
  Company Number: US-GLAXOSMITHKLINE-A0565268A

PATIENT
  Age: 60 Year
  Sex: Female

DRUGS (1)
  1. LAMICTAL [Suspect]
     Indication: DISSOCIATIVE DISORDER
     Route: 048
     Dates: start: 20050222, end: 20050623

REACTIONS (3)
  - RASH [None]
  - SYNCOPE [None]
  - THROAT TIGHTNESS [None]
